FAERS Safety Report 5078117-0 (Version None)
Quarter: 2006Q3

REPORT INFORMATION
  Report Type: 
  Country: None (occurrence: None)
  Receive Date: 20060808
  Receipt Date: 20060718
  Transmission Date: 20061208
  Serious: Yes (Other)
  Sender: FDA-Public Use
  Company Number: JP200607003643

PATIENT
  Age: 76 Year
  Sex: Female

DRUGS (2)
  1. RALOXIFENE HCL [Suspect]
     Indication: OSTEOPOROSIS POSTMENOPAUSAL
     Dosage: 60 MG, DAILY (1/D), ORAL
     Route: 048
     Dates: start: 20050121, end: 20050301
  2. ELCATONIN (ELCATONIN) [Concomitant]

REACTIONS (2)
  - CEREBRAL INFARCTION [None]
  - DEMENTIA [None]
